FAERS Safety Report 6545774-9 (Version None)
Quarter: 2010Q1

REPORT INFORMATION
  Report Type: 
  Country: None (occurrence: None)
  Receive Date: 20100114
  Receipt Date: 20090925
  Transmission Date: 20100710
  Serious: No
  Sender: FDA-Public Use
  Company Number: 2009BM000240

PATIENT
  Age: 13 Year
  Sex: Male
  Weight: 47.4 kg

DRUGS (4)
  1. KUVAN [Suspect]
     Indication: PHENYLKETONURIA
     Dosage: 20 MG/KG;QD;PO ; 10 MG/KG;QD;PO ; 20 MG/KG;HS;PO
     Route: 048
     Dates: start: 20090925, end: 20090101
  2. KUVAN [Suspect]
     Indication: PHENYLKETONURIA
     Dosage: 20 MG/KG;QD;PO ; 10 MG/KG;QD;PO ; 20 MG/KG;HS;PO
     Route: 048
     Dates: start: 20090820, end: 20090924
  3. KUVAN [Suspect]
     Indication: PHENYLKETONURIA
     Dosage: 20 MG/KG;QD;PO ; 10 MG/KG;QD;PO ; 20 MG/KG;HS;PO
     Route: 048
     Dates: start: 20090101
  4. AMINO ACIDS [Concomitant]

REACTIONS (4)
  - ABDOMINAL DISCOMFORT [None]
  - ABDOMINAL PAIN UPPER [None]
  - NAUSEA [None]
  - VOMITING [None]
